FAERS Safety Report 19802238 (Version 1)
Quarter: 2021Q3

REPORT INFORMATION
  Report Type: Spontaneous
  Country: US (occurrence: US)
  Receive Date: 20210907
  Receipt Date: 20210907
  Transmission Date: 20211014
  Serious: Yes (Hospitalization, Other)
  Sender: FDA-Public Use
  Company Number: None

PATIENT
  Age: 55 Year
  Sex: Female

DRUGS (15)
  1. CLONAZEPAM. [Concomitant]
     Active Substance: CLONAZEPAM
  2. VALSARTAN. [Concomitant]
     Active Substance: VALSARTAN
  3. PROGESTERONE. [Concomitant]
     Active Substance: PROGESTERONE
  4. VITAMIN D [Concomitant]
     Active Substance: VITAMIN D NOS
  5. PROBIOTIC [Concomitant]
     Active Substance: PROBIOTICS NOS
  6. NUEDEXTA [Concomitant]
     Active Substance: DEXTROMETHORPHAN HYDROBROMIDE\QUINIDINE SULFATE
  7. DULOXETINE. [Concomitant]
     Active Substance: DULOXETINE
  8. BIOTIN [Concomitant]
     Active Substance: BIOTIN
  9. VITAMIN B12 [Concomitant]
     Active Substance: CYANOCOBALAMIN
  10. METHYLPHENIDATE. [Concomitant]
     Active Substance: METHYLPHENIDATE
  11. FOLATE [Concomitant]
     Active Substance: FOLATE SODIUM
  12. NUEDEXTA [Suspect]
     Active Substance: DEXTROMETHORPHAN HYDROBROMIDE\QUINIDINE SULFATE
     Indication: BRAIN INJURY
     Route: 048
     Dates: start: 20170501
  13. BUPROPION. [Concomitant]
     Active Substance: BUPROPION
  14. VIVELLE?DOT [Concomitant]
     Active Substance: ESTRADIOL
  15. METHOCARBAMOL. [Concomitant]
     Active Substance: METHOCARBAMOL

REACTIONS (1)
  - Suicidal ideation [None]

NARRATIVE: CASE EVENT DATE: 20190301
